FAERS Safety Report 4480389-8 (Version None)
Quarter: 2004Q4

REPORT INFORMATION
  Report Type: 
  Country: None (occurrence: None)
  Receive Date: 20041018
  Receipt Date: 20040930
  Transmission Date: 20050328
  Serious: Yes (Other)
  Sender: FDA-Public Use
  Company Number: 2004IC000541

PATIENT
  Age: 68 Year
  Sex: Male

DRUGS (12)
  1. FLUOROURACIL [Suspect]
     Indication: COLORECTAL CANCER METASTATIC
     Dosage: 400 MG/M**2; INTRAVENOUS BOLUS ; 3000 MG/M**2, INTRAVENOUS BOLUS
     Route: 040
     Dates: end: 20000307
  2. FLUOROURACIL [Suspect]
     Indication: COLORECTAL CANCER METASTATIC
     Dosage: 400 MG/M**2; INTRAVENOUS BOLUS ; 3000 MG/M**2, INTRAVENOUS BOLUS
     Route: 040
     Dates: start: 19991027
  3. OXALIPLATIN (OXALIPLATIN) [Suspect]
     Indication: COLORECTAL CANCER METASTATIC
     Dosage: 85 MG/M**2 , INTRAVENOUS
     Route: 042
  4. LEUCOVORIN CALCIUM [Suspect]
     Indication: COLORECTAL CANCER METASTATIC
     Dosage: 150 MG/M**2, INTRAVENOUS
     Route: 042
  5. MEBEVERINE [Concomitant]
  6. ETOFENAMATE [Concomitant]
  7. EUCLIDAN [Concomitant]
  8. ALUGEL [Concomitant]
  9. COLCHICINE [Concomitant]
  10. ATIVAN [Concomitant]
  11. INDOCIN [Concomitant]
  12. ARTANE [Concomitant]

REACTIONS (2)
  - NEUROTOXICITY [None]
  - PERIPHERAL SENSORY NEUROPATHY [None]
